FAERS Safety Report 7561198-X (Version None)
Quarter: 2011Q2

REPORT INFORMATION
  Report Type: 
  Country: None (occurrence: None)
  Receive Date: 20110621
  Receipt Date: 20100503
  Transmission Date: 20111010
  Serious: No
  Sender: FDA-Public Use
  Company Number: US-ASTRAZENECA-2010SE20019

PATIENT
  Sex: Male

DRUGS (7)
  1. LUNESTA [Concomitant]
  2. OTC VITAMINS [Concomitant]
  3. SIMVASTATIN [Concomitant]
  4. EFFEXOR [Concomitant]
  5. PREVACID [Concomitant]
  6. PULMICORT FLEXHALER [Suspect]
     Route: 055
  7. SYMBICORT [Suspect]
     Dosage: 80 / 4.5 MCG, 2 PUFFS TWO TIMES A DAY
     Route: 055
     Dates: start: 20100428

REACTIONS (5)
  - DYSPNOEA [None]
  - HYPERSENSITIVITY [None]
  - CHEST DISCOMFORT [None]
  - EYE IRRITATION [None]
  - INSOMNIA [None]
